FAERS Safety Report 19349743 (Version 1)
Quarter: 2021Q2

REPORT INFORMATION
  Report Type: Spontaneous
  Country: GB (occurrence: GB)
  Receive Date: 20210531
  Receipt Date: 20210531
  Transmission Date: 20210717
  Serious: Yes (Other)
  Sender: FDA-Public Use
  Company Number: GB-TEVA-2021-GB-1915748

PATIENT
  Age: 74 Year
  Sex: Female
  Weight: 84.45 kg

DRUGS (47)
  1. CARBOPLATIN. [Suspect]
     Active Substance: CARBOPLATIN
     Indication: SMALL CELL LUNG CANCER EXTENSIVE STAGE
     Dosage: 450 MG
     Route: 065
     Dates: start: 20201124
  2. DEXAMETHASONE. [Suspect]
     Active Substance: DEXAMETHASONE
     Dosage: UNK, DAILY
     Route: 065
  3. CLOBETASOL [Concomitant]
     Active Substance: CLOBETASOL
     Dosage: UNK, DAILY
     Dates: end: 20210108
  4. DENOSUMAB [Concomitant]
     Active Substance: DENOSUMAB
     Dosage: UNK, MONTHLY
     Dates: start: 20201124
  5. METHYLPREDNISOLONE. [Concomitant]
     Active Substance: METHYLPREDNISOLONE
     Dosage: UNK, DAILY
     Dates: end: 20210120
  6. NYSTATIN. [Concomitant]
     Active Substance: NYSTATIN
     Dosage: UNK, EVERY 4 DAY
     Dates: end: 20210107
  7. PHYTOMENADIONE [Concomitant]
     Active Substance: PHYTONADIONE
     Dosage: UNK, EVERY 0.5 DAY
     Dates: end: 20201226
  8. AMITRIPTYLINE [Concomitant]
     Active Substance: AMITRIPTYLINE
  9. AQUEOUS CREAM [Concomitant]
     Dosage: UNK, EVERY 0.5 DAY
  10. FILGRASTIM [Concomitant]
     Active Substance: FILGRASTIM
     Dosage: UNK, DAILY
     Dates: end: 20201226
  11. MEROPENEM. [Concomitant]
     Active Substance: MEROPENEM
     Dosage: UNK, EVERY 0.33 DAY
     Dates: end: 20210103
  12. ONDANSETRON [Concomitant]
     Active Substance: ONDANSETRON
     Dosage: UNK UNK, DAILY
     Dates: end: 20201215
  13. VANCOMYCIN [Concomitant]
     Active Substance: VANCOMYCIN
     Dosage: UNK, EVERY 4 DAY
     Dates: end: 20210120
  14. ACICLOVIR [Concomitant]
     Active Substance: ACYCLOVIR
     Dates: end: 20210126
  15. CALCIUM CARBONATE. [Concomitant]
     Active Substance: CALCIUM CARBONATE
     Dosage: UNK, DAILY
     Dates: end: 20210108
  16. CHLORPHENAMINE [Concomitant]
     Active Substance: CHLORPHENIRAMINE MALEATE
     Dosage: UNK, DAILY
     Dates: start: 20201124, end: 20201124
  17. PHOSPHATE ION [Concomitant]
     Active Substance: PHOSPHATE ION
     Dosage: UNK, DAILY
     Dates: end: 20201226
  18. SODIUM CHLORIDE. [Concomitant]
     Active Substance: SODIUM CHLORIDE
     Dates: start: 20201124, end: 20201124
  19. DEXAMETHASONE. [Suspect]
     Active Substance: DEXAMETHASONE
     Dosage: UNK, DAILY
     Route: 065
  20. CYCLIZINE [Concomitant]
     Active Substance: CYCLIZINE
     Dosage: UNK, EVERY 0.33 DAY
  21. DOMPERIDONE [Concomitant]
     Active Substance: DOMPERIDONE
     Dates: start: 20201103
  22. MAGNESIUM SULFATE. [Concomitant]
     Active Substance: MAGNESIUM SULFATE
     Dosage: UNK UNK, DAILY
     Dates: end: 20201226
  23. ONDANSETRON [Concomitant]
     Active Substance: ONDANSETRON
     Dosage: UNK, DAILY
     Dates: start: 20201124, end: 20201124
  24. POTASSIUM CHLORIDE. [Concomitant]
     Active Substance: POTASSIUM CHLORIDE
     Dosage: UNK, EVERY 0.33 DAY
     Dates: end: 20210104
  25. SIMVASTATIN. [Concomitant]
     Active Substance: SIMVASTATIN
     Dosage: UNK UNK, DAILY
  26. DEXAMETHASONE. [Suspect]
     Active Substance: DEXAMETHASONE
     Dosage: UNK, DAILY
     Route: 065
     Dates: start: 20201124, end: 20201124
  27. DEXAMETHASONE. [Suspect]
     Active Substance: DEXAMETHASONE
     Dosage: UNK, DAILY
     Route: 065
     Dates: start: 20201125, end: 20201127
  28. ETOPOSIDE. [Suspect]
     Active Substance: ETOPOSIDE
     Indication: SMALL CELL LUNG CANCER EXTENSIVE STAGE
     Dosage: 200 MG
     Route: 065
     Dates: start: 20201124
  29. PREDNISOLONE. [Suspect]
     Active Substance: PREDNISOLONE
     Dosage: UNK, DAILY
     Route: 065
     Dates: end: 20210121
  30. ATEZOLIZUMAB. [Suspect]
     Active Substance: ATEZOLIZUMAB
     Indication: SMALL CELL LUNG CANCER EXTENSIVE STAGE
     Dosage: 1200 MG, Q3WEEKS
     Route: 042
     Dates: start: 20201124
  31. ATEZOLIZUMAB. [Suspect]
     Active Substance: ATEZOLIZUMAB
     Dosage: 1200 MG, Q3WEEKS
     Route: 042
  32. CHLORPHENAMINE [Concomitant]
     Active Substance: CHLORPHENIRAMINE MALEATE
     Dosage: 10 MG
     Dates: end: 20201215
  33. HYDROCORTISONE. [Concomitant]
     Active Substance: HYDROCORTISONE
     Dosage: 100 MILLIGRAM DAILY;
     Dates: start: 20201124, end: 20201124
  34. OXYGEN. [Concomitant]
     Active Substance: OXYGEN
     Dosage: UNK, DAILY
     Dates: start: 20201124, end: 20201124
  35. PARACETAMOL [Concomitant]
     Active Substance: ACETAMINOPHEN
     Indication: PAIN
  36. CALCIUM GLUCONATE. [Concomitant]
     Active Substance: CALCIUM GLUCONATE
     Dosage: UNK, DAILY
     Dates: end: 20201226
  37. CO?AMOXICLAV [Concomitant]
     Active Substance: AMOXICILLIN\CLAVULANATE POTASSIUM
     Dosage: UNK, EVERY 0.33 DAY
     Dates: end: 20210107
  38. DEXAMETHASONE. [Suspect]
     Active Substance: DEXAMETHASONE
     Dosage: 8 MG
     Route: 065
  39. ATEZOLIZUMAB. [Suspect]
     Active Substance: ATEZOLIZUMAB
     Dosage: 1200 MG, Q3WEEKS
     Route: 042
     Dates: start: 20201103
  40. FILGRASTIM [Concomitant]
     Active Substance: FILGRASTIM
     Dosage: UNK, DAILY
     Dates: start: 20201128, end: 20201205
  41. PHOSPHATE SANDOZ EFFERVESCENT [Concomitant]
     Dosage: UNK, EVERY 0.33 DAYS
     Dates: end: 20210108
  42. ADCAL [Concomitant]
     Dosage: UNK, EVERY 0.5 DAY
     Dates: start: 20201124
  43. DALTEPARIN [Concomitant]
     Active Substance: DALTEPARIN
     Dosage: UNK, DAILY
     Dates: end: 20210125
  44. DIHYDROCODEINE [Concomitant]
     Active Substance: DIHYDROCODEINE
     Indication: PAIN
  45. LOPERAMIDE [Concomitant]
     Active Substance: LOPERAMIDE
     Dates: start: 20201103
  46. ONDANSETRON [Concomitant]
     Active Substance: ONDANSETRON
     Dosage: UNK, EVERY 0.33 DAY
  47. TRIMOVATE [Concomitant]
     Active Substance: CLOBETASONE BUTYRATE\NYSTATIN\OXYTETRACYCLINE CALCIUM
     Dosage: UNK, EVERY 0.5 DAY
     Dates: end: 20210109

REACTIONS (1)
  - Pancreatitis chronic [Not Recovered/Not Resolved]

NARRATIVE: CASE EVENT DATE: 202012
